FAERS Safety Report 15926877 (Version 1)
Quarter: 2019Q1

REPORT INFORMATION
  Report Type: Report from Study
  Country: US (occurrence: US)
  Receive Date: 20190206
  Receipt Date: 20190206
  Transmission Date: 20190417
  Serious: Yes (Hospitalization)
  Sender: FDA-Public Use
  Company Number: PHEH2019US004784

PATIENT
  Age: 67 Year
  Sex: Female

DRUGS (1)
  1. COSENTYX [Suspect]
     Active Substance: SECUKINUMAB
     Indication: PSORIASIS
     Dosage: 300 MG, QMO
     Route: 058
     Dates: start: 20160420

REACTIONS (5)
  - Dehydration [Recovering/Resolving]
  - Thyroid disorder [Recovering/Resolving]
  - Paraesthesia [Recovering/Resolving]
  - Asthenia [Recovering/Resolving]
  - Viral infection [Recovering/Resolving]
